FAERS Safety Report 9023787 (Version 1)
Quarter: 2013Q1

REPORT INFORMATION
  Report Type: Spontaneous
  Country: US (occurrence: US)
  Receive Date: 20130121
  Receipt Date: 20130121
  Transmission Date: 20140127
  Serious: Yes (Other)
  Sender: FDA-Public Use
  Company Number: US-PFIZER INC-2013024509

PATIENT
  Sex: Female

DRUGS (12)
  1. LYRICA [Suspect]
     Indication: FIBROMYALGIA
     Dosage: UNK, DAILY
     Dates: start: 2005
  2. LYRICA [Suspect]
     Dosage: UNK, EVERY OTHER DAY
  3. DEXILANT [Concomitant]
     Dosage: UNK
  4. CRESTOR [Concomitant]
     Dosage: UNK
  5. ALDACTONE [Concomitant]
     Dosage: UNK
  6. CARDURA [Concomitant]
     Dosage: 4 MG, 1X/DAY (DAILY)
  7. TOPROL XL [Concomitant]
     Dosage: 50 MG, 1X/DAY (DAILY)
  8. HYDRALAZINE [Concomitant]
     Dosage: UNK
  9. PLAVIX [Concomitant]
     Dosage: 75 MG, UNK
  10. CLONIDINE [Concomitant]
     Dosage: 0.1 MG, UNK
  11. EDECRIN [Concomitant]
     Dosage: 25 MG, UNK
  12. FIORICET [Concomitant]
     Dosage: UNK

REACTIONS (9)
  - Renal artery stenosis [Unknown]
  - Renal impairment [Unknown]
  - Cerebrovascular arteriovenous malformation [Unknown]
  - Headache [Not Recovered/Not Resolved]
  - Nausea [Not Recovered/Not Resolved]
  - Blood glucose increased [Not Recovered/Not Resolved]
  - Appetite disorder [Unknown]
  - Fatigue [Unknown]
  - Oedema [Unknown]
